FAERS Safety Report 14187109 (Version 1)
Quarter: 2017Q4

REPORT INFORMATION
  Report Type: Spontaneous
  Country: US (occurrence: US)
  Receive Date: 20171113
  Receipt Date: 20171113
  Transmission Date: 20180321
  Serious: Yes (Other)
  Sender: FDA-Public Use
  Company Number: None

PATIENT
  Age: 72 Year
  Sex: Male
  Weight: 91.17 kg

DRUGS (22)
  1. PANTOPRAZOLE [Concomitant]
     Active Substance: PANTOPRAZOLE
  2. GLIMEPIRIDE. [Concomitant]
     Active Substance: GLIMEPIRIDE
  3. EZETIMIBE. [Concomitant]
     Active Substance: EZETIMIBE
  4. ZYTIGA [Suspect]
     Active Substance: ABIRATERONE ACETATE
     Indication: PROSTATE CANCER
     Route: 048
     Dates: start: 20171010, end: 20171113
  5. SPIRONOLACTONE. [Concomitant]
     Active Substance: SPIRONOLACTONE
  6. FOLIC ACID. [Concomitant]
     Active Substance: FOLIC ACID
  7. FERROUS SULFATE. [Concomitant]
     Active Substance: FERROUS SULFATE
  8. COLESTIPOL [Concomitant]
     Active Substance: COLESTIPOL
  9. PROCHLORPERAZINE. [Concomitant]
     Active Substance: PROCHLORPERAZINE
  10. LISINOPRIL. [Concomitant]
     Active Substance: LISINOPRIL
  11. PREDNISONE. [Concomitant]
     Active Substance: PREDNISONE
  12. ONDANSETRON [Concomitant]
     Active Substance: ONDANSETRON
  13. NITROGLYCERIN. [Concomitant]
     Active Substance: NITROGLYCERIN
  14. HYDROCHLOROTHIAZIDE. [Concomitant]
     Active Substance: HYDROCHLOROTHIAZIDE
  15. AMLODIPINE [Concomitant]
     Active Substance: AMLODIPINE BESYLATE
  16. VITAMIN B12 [Concomitant]
     Active Substance: CYANOCOBALAMIN
  17. METOPROLOL SUCCINATE. [Concomitant]
     Active Substance: METOPROLOL SUCCINATE
  18. METFORMIN [Concomitant]
     Active Substance: METFORMIN HYDROCHLORIDE
  19. ONDANSETRON [Concomitant]
     Active Substance: ONDANSETRON
  20. DEXAMETHASONE. [Concomitant]
     Active Substance: DEXAMETHASONE
  21. LEVOTHYROXINE. [Concomitant]
     Active Substance: LEVOTHYROXINE
  22. DOCUSATE [Concomitant]
     Active Substance: DOCUSATE

REACTIONS (3)
  - Therapy cessation [None]
  - Prostatic specific antigen increased [None]
  - Disease progression [None]

NARRATIVE: CASE EVENT DATE: 20171113
